FAERS Safety Report 24773516 (Version 1)
Quarter: 2024Q4

REPORT INFORMATION
  Report Type: Report from Study
  Country: US (occurrence: US)
  Receive Date: 20241225
  Receipt Date: 20241225
  Transmission Date: 20250114
  Serious: Yes (Other)
  Sender: ALEXION PHARMACEUTICALS
  Company Number: US-AstraZeneca-CH-00771872A

PATIENT

DRUGS (4)
  1. CAPIVASERTIB [Suspect]
     Active Substance: CAPIVASERTIB
     Indication: Neoplasm malignant
     Dosage: 320 MILLIGRAM, BID
  2. CAPIVASERTIB [Suspect]
     Active Substance: CAPIVASERTIB
     Dosage: 320 MILLIGRAM, BID
     Route: 048
  3. CAPIVASERTIB [Suspect]
     Active Substance: CAPIVASERTIB
     Dosage: 320 MILLIGRAM, BID
  4. CAPIVASERTIB [Suspect]
     Active Substance: CAPIVASERTIB
     Dosage: 320 MILLIGRAM, BID
     Route: 048

REACTIONS (2)
  - Shoulder fracture [Recovered/Resolved]
  - Vomiting [Unknown]
